FAERS Safety Report 4495253-8 (Version None)
Quarter: 2004Q4

REPORT INFORMATION
  Report Type: 
  Country: None (occurrence: None)
  Receive Date: 20041108
  Receipt Date: 20040802
  Transmission Date: 20050328
  Serious: No
  Sender: FDA-Public Use
  Company Number: US-GLAXOSMITHKLINE-A0520515A

PATIENT
  Age: 48 Year
  Sex: Male

DRUGS (10)
  1. AVANDIA [Suspect]
     Dosage: 8MG PER DAY
     Route: 048
     Dates: start: 20040101
  2. AVANDAMET [Suspect]
     Dosage: 1TAB TWICE PER DAY
     Route: 048
     Dates: start: 20040101
  3. LANTUS [Concomitant]
  4. LASIX [Concomitant]
  5. LOPID [Concomitant]
  6. VALIUM [Concomitant]
  7. PROZAC [Concomitant]
  8. SEROQUEL [Concomitant]
  9. REMERON [Concomitant]
  10. LITHIUM [Concomitant]

REACTIONS (2)
  - CLUSTER HEADACHE [None]
  - OEDEMA [None]
